FAERS Safety Report 5824568-3 (Version None)
Quarter: 2008Q3

REPORT INFORMATION
  Report Type: 
  Country: None (occurrence: None)
  Receive Date: 20080728
  Receipt Date: 20080715
  Transmission Date: 20090109
  Serious: Yes (Other)
  Sender: FDA-Public Use
  Company Number: GB-MERCK-0807GBR00092

PATIENT
  Sex: Male

DRUGS (1)
  1. LEVODOPA AND CARBIDOPA [Suspect]
     Route: 048
     Dates: start: 20040101

REACTIONS (1)
  - DISEASE PROGRESSION [None]
